FAERS Safety Report 12680511 (Version 9)
Quarter: 2017Q3

REPORT INFORMATION
  Report Type: Report from Study
  Country: CO (occurrence: CO)
  Receive Date: 20160824
  Receipt Date: 20170716
  Transmission Date: 20171127
  Serious: Yes (Death, Hospitalization)
  Sender: FDA-Public Use
  Company Number: PHHY2016CO100019

PATIENT
  Age: 57 Year
  Sex: Male
  Weight: 50 kg

DRUGS (11)
  1. PREGABALIN. [Concomitant]
     Active Substance: PREGABALIN
     Indication: PRODUCT USED FOR UNKNOWN INDICATION
     Dosage: 150 MG, BID
     Route: 065
  2. AFINITOR [Suspect]
     Active Substance: EVEROLIMUS
     Dosage: 10 MG, QD
     Route: 048
  3. LORAZEPAM. [Concomitant]
     Active Substance: LORAZEPAM
     Indication: PRODUCT USED FOR UNKNOWN INDICATION
     Route: 065
  4. AFINITOR [Suspect]
     Active Substance: EVEROLIMUS
     Indication: PANCREATIC NEUROENDOCRINE TUMOUR
     Dosage: 10 MG, QD
     Route: 048
     Dates: start: 20160417
  5. HYOSCINE [Concomitant]
     Active Substance: SCOPOLAMINE
     Indication: PRODUCT USED FOR UNKNOWN INDICATION
     Dosage: UNK UNK, Q6H
     Route: 065
  6. LANREOTIDE [Concomitant]
     Active Substance: LANREOTIDE
     Indication: PRODUCT USED FOR UNKNOWN INDICATION
     Dosage: 120 MG, QMO
     Route: 065
  7. BISACODYL. [Concomitant]
     Active Substance: BISACODYL
     Indication: PRODUCT USED FOR UNKNOWN INDICATION
     Route: 065
  8. FUROSEMIDE. [Concomitant]
     Active Substance: FUROSEMIDE
     Indication: PRODUCT USED FOR UNKNOWN INDICATION
     Route: 065
  9. IMIPRAMINE [Concomitant]
     Active Substance: IMIPRAMINE
     Indication: PRODUCT USED FOR UNKNOWN INDICATION
     Dosage: 2 (UNIT UNSPECIFIED), QHS
     Route: 065
  10. OXYCODONE [Concomitant]
     Active Substance: OXYCODONE
     Indication: PRODUCT USED FOR UNKNOWN INDICATION
     Route: 065
  11. FENTANYL. [Concomitant]
     Active Substance: FENTANYL
     Indication: PAIN
     Route: 065

REACTIONS (23)
  - General physical health deterioration [Unknown]
  - Renal pain [Unknown]
  - Depression [Unknown]
  - Weight decreased [Unknown]
  - Pruritus generalised [Unknown]
  - Cancer pain [Unknown]
  - Abdominal pain [Unknown]
  - Eating disorder [Unknown]
  - Groin pain [Unknown]
  - Hypersensitivity [Unknown]
  - Malignant neoplasm progression [Unknown]
  - Peripheral swelling [Unknown]
  - Hepatic lesion [Unknown]
  - Pain in extremity [Unknown]
  - Memory impairment [Unknown]
  - Inflammation [Unknown]
  - Metastases to spine [Unknown]
  - Spinal fracture [Unknown]
  - Back pain [Unknown]
  - Speech disorder [Unknown]
  - Pancreatic neuroendocrine tumour [Fatal]
  - Thinking abnormal [Unknown]
  - Malaise [Unknown]

NARRATIVE: CASE EVENT DATE: 20161108
